FAERS Safety Report 15320552 (Version 4)
Quarter: 2022Q2

REPORT INFORMATION
  Report Type: Report from Study
  Country: JP (occurrence: JP)
  Receive Date: 20180827
  Receipt Date: 20220624
  Transmission Date: 20220720
  Serious: Yes (Other)
  Sender: FDA-Public Use
  Company Number: JP-VIIV HEALTHCARE LIMITED-JP2018JPN152956

PATIENT

DRUGS (1)
  1. ABACAVIR SULFATE\DOLUTEGRAVIR SODIUM\LAMIVUDINE [Suspect]
     Active Substance: ABACAVIR SULFATE\DOLUTEGRAVIR SODIUM\LAMIVUDINE
     Indication: HIV infection
     Dosage: 1 DF, 1D
     Route: 048
     Dates: start: 20170722, end: 20200204

REACTIONS (10)
  - Anal abscess [Recovering/Resolving]
  - Insomnia [Not Recovered/Not Resolved]
  - Rash [Recovering/Resolving]
  - Blood triglycerides increased [Recovered/Resolved]
  - Balanoposthitis [Recovering/Resolving]
  - Diarrhoea [Recovering/Resolving]
  - Cough variant asthma [Recovering/Resolving]
  - Pharyngitis [Recovering/Resolving]
  - Back pain [Not Recovered/Not Resolved]
  - Pharyngitis [Recovering/Resolving]

NARRATIVE: CASE EVENT DATE: 20170812
